FAERS Safety Report 4545903-2 (Version None)
Quarter: 2005Q1

REPORT INFORMATION
  Report Type: 
  Country: None (occurrence: None)
  Receive Date: 20050103
  Receipt Date: 20041215
  Transmission Date: 20050727
  Serious: Yes (Hospitalization)
  Sender: FDA-Public Use
  Company Number: 165908

PATIENT
  Age: 51 Year
  Sex: Female
  Weight: 84.8226 kg

DRUGS (4)
  1. AVONEX [Suspect]
     Indication: MULTIPLE SCLEROSIS
     Dates: start: 20000101
  2. ZANAFLEX [Concomitant]
  3. SYNTHROID [Concomitant]
  4. AMANTADINE [Concomitant]

REACTIONS (7)
  - ARTHRALGIA [None]
  - CONTUSION [None]
  - DYSPEPSIA [None]
  - FALL [None]
  - MOVEMENT DISORDER [None]
  - PAIN IN EXTREMITY [None]
  - SCOLIOSIS [None]
